FAERS Safety Report 4755091-5 (Version None)
Quarter: 2005Q3

REPORT INFORMATION
  Report Type: 
  Country: None (occurrence: None)
  Receive Date: 20050826
  Receipt Date: 20050815
  Transmission Date: 20060218
  Serious: Yes (Other)
  Sender: FDA-Public Use
  Company Number: 2005NV000048

PATIENT
  Age: 36 Year
  Sex: Female

DRUGS (17)
  1. AVC [Suspect]
     Indication: WOUND TREATMENT
     Dosage: X1; ICAV
     Route: 017
  2. FLEXERIL [Concomitant]
  3. BACLOFEN [Concomitant]
  4. SOMA [Concomitant]
  5. OXCARBAZEPINE [Concomitant]
  6. AMITRIPTYLINE HCL [Concomitant]
  7. METHADONE HCL [Concomitant]
  8. RESTORIL [Concomitant]
  9. ZANAFLEX [Concomitant]
  10. LOVENOX [Concomitant]
  11. HYDROMORPHONE [Concomitant]
  12. MIDAZOLAM HCL [Concomitant]
  13. FENTANYL [Concomitant]
  14. PROPOFOL [Concomitant]
  15. PHENYLEPHRINE HYDROCHLORIDE [Concomitant]
  16. CISPLATIN [Concomitant]
  17. HYDROMORPHONE [Concomitant]

REACTIONS (8)
  - ABULIA [None]
  - APHASIA [None]
  - CONFUSIONAL STATE [None]
  - CYANOSIS [None]
  - LETHARGY [None]
  - METHAEMOGLOBINAEMIA [None]
  - PALLOR [None]
  - SOMNOLENCE [None]
